FAERS Safety Report 23081963 (Version 1)
Quarter: 2023Q4

REPORT INFORMATION
  Report Type: Spontaneous
  Country: US (occurrence: US)
  Receive Date: 20231019
  Receipt Date: 20231019
  Transmission Date: 20240110
  Serious: Yes (Other)
  Sender: FDA-Public Use
  Company Number: US-AMGEN-USASP2023183551

PATIENT
  Age: 71 Year
  Sex: Male

DRUGS (2)
  1. INFLIXIMAB [Suspect]
     Active Substance: INFLIXIMAB
     Indication: Pneumonitis
     Dosage: 5 MILLIGRAM PER KILOGRAM (ONE DOSE)
     Route: 065
  2. HUMAN IMMUNOGLOBULIN G [Concomitant]
     Active Substance: HUMAN IMMUNOGLOBULIN G
     Indication: Pneumonitis
     Dosage: 0.4 GRAM PER KILOGRAM
     Route: 042

REACTIONS (2)
  - Respiratory failure [Unknown]
  - Off label use [Unknown]
